FAERS Safety Report 9216239 (Version 2)
Quarter: 2013Q2

REPORT INFORMATION
  Report Type: Spontaneous
  Country: AU (occurrence: None)
  Receive Date: 20130404
  Receipt Date: 20130404
  Transmission Date: 20140414
  Serious: Yes (Other)
  Sender: FDA-Public Use
  Company Number: CIP-2013-00107

PATIENT
  Sex: 0

DRUGS (3)
  1. CARBOPLATIN? [Suspect]
     Indication: BREAST CANCER
  2. DOCETAXEL (DOCETAXEL) [Concomitant]
  3. TRASTUZUMAB (TRASTUZUMAB) [Concomitant]

REACTIONS (1)
  - Inappropriate antidiuretic hormone secretion [None]
